FAERS Safety Report 7481834-6 (Version None)
Quarter: 2011Q2

REPORT INFORMATION
  Report Type: 
  Country: None (occurrence: None)
  Receive Date: 20110516
  Receipt Date: 20110512
  Transmission Date: 20111010
  Serious: Yes (Death)
  Sender: FDA-Public Use
  Company Number: PHHY2011CO40572

PATIENT
  Sex: Female

DRUGS (1)
  1. AFINITOR [Suspect]
     Indication: RENAL CELL CARCINOMA
     Dosage: 10 MG,
     Route: 048
     Dates: start: 20110416

REACTIONS (3)
  - FISTULA [None]
  - POST PROCEDURAL COMPLICATION [None]
  - WOUND [None]
